FAERS Safety Report 16543501 (Version 3)
Quarter: 2022Q1

REPORT INFORMATION
  Report Type: Spontaneous
  Country: US (occurrence: None)
  Receive Date: 20190709
  Receipt Date: 20220323
  Transmission Date: 20220423
  Serious: Yes (Other)
  Sender: FDA-Public Use
  Company Number: 2019SE95810

PATIENT
  Age: 22358 Day
  Sex: Male
  Weight: 135.6 kg

DRUGS (50)
  1. NEXIUM [Suspect]
     Active Substance: ESOMEPRAZOLE MAGNESIUM
     Indication: Gastrooesophageal reflux disease
     Route: 048
     Dates: start: 200311, end: 201510
  2. NEXIUM [Suspect]
     Active Substance: ESOMEPRAZOLE MAGNESIUM
     Indication: Gastrooesophageal reflux disease
     Route: 048
     Dates: start: 2009, end: 2013
  3. NEXIUM [Suspect]
     Active Substance: ESOMEPRAZOLE MAGNESIUM
     Indication: Gastrooesophageal reflux disease
     Dosage: GENERIC
     Route: 065
     Dates: start: 2009, end: 2013
  4. NEXIUM [Suspect]
     Active Substance: ESOMEPRAZOLE MAGNESIUM
     Indication: Gastrooesophageal reflux disease
     Route: 048
     Dates: start: 2003, end: 2015
  5. NEXIUM [Suspect]
     Active Substance: ESOMEPRAZOLE MAGNESIUM
     Indication: Gastrooesophageal reflux disease
     Route: 048
     Dates: start: 20090321
  6. NEXIUM [Suspect]
     Active Substance: ESOMEPRAZOLE MAGNESIUM
     Indication: Gastrooesophageal reflux disease
     Route: 048
     Dates: start: 20031111
  7. GLIMEPIRIDE [Concomitant]
     Active Substance: GLIMEPIRIDE
     Indication: Diabetes mellitus
     Dates: start: 2010, end: 2014
  8. GLIMEPIRIDE [Concomitant]
     Active Substance: GLIMEPIRIDE
     Indication: Diabetes mellitus
     Dates: start: 2011, end: 2013
  9. CEPHALEXIN [Concomitant]
     Active Substance: CEPHALEXIN
     Indication: Infection
     Dates: start: 2009, end: 2011
  10. DIOVAN [Concomitant]
     Active Substance: VALSARTAN
     Indication: Blood pressure abnormal
     Dates: start: 2009, end: 2012
  11. AMLODIPINE [Concomitant]
     Active Substance: AMLODIPINE BESYLATE
     Indication: Hypertension
     Dates: start: 2007, end: 2015
  12. AMLODIPINE [Concomitant]
     Active Substance: AMLODIPINE BESYLATE
     Indication: Angina pectoris
     Dates: start: 2007, end: 2015
  13. AMLODIPINE [Concomitant]
     Active Substance: AMLODIPINE BESYLATE
     Indication: Hypertension
     Dates: start: 2009, end: 2013
  14. AMLODIPINE [Concomitant]
     Active Substance: AMLODIPINE BESYLATE
     Indication: Angina pectoris
     Dates: start: 2009, end: 2013
  15. LOVAZA [Concomitant]
     Active Substance: OMEGA-3-ACID ETHYL ESTERS
     Indication: Blood pressure abnormal
     Dates: start: 2009, end: 2013
  16. AZITHROMYCIN [Concomitant]
     Active Substance: AZITHROMYCIN
     Indication: Infection
     Dates: start: 2009, end: 2012
  17. BENAZEPRIL [Concomitant]
     Active Substance: BENAZEPRIL HYDROCHLORIDE
     Indication: Blood pressure abnormal
     Dates: start: 2009, end: 2012
  18. TRILIPIX [Concomitant]
     Active Substance: FENOFIBRIC ACID
     Indication: Blood cholesterol abnormal
     Dates: start: 2009, end: 2013
  19. VALSARTAN [Concomitant]
     Active Substance: VALSARTAN
     Indication: Myocardial infarction
     Dates: start: 2013
  20. JANUVIA [Concomitant]
     Active Substance: SITAGLIPTIN PHOSPHATE
     Indication: Diabetes mellitus
     Dates: start: 2010, end: 2013
  21. ATORVASTATIN [Concomitant]
     Active Substance: ATORVASTATIN
     Indication: Angina pectoris
     Dates: start: 2012, end: 2013
  22. TRAMADOL [Concomitant]
     Active Substance: TRAMADOL
     Indication: Pain
     Dates: start: 2010, end: 2013
  23. FUROSEMIDE [Concomitant]
     Active Substance: FUROSEMIDE
     Indication: Nephropathy
     Dates: start: 2013
  24. MODAFINIL [Concomitant]
     Active Substance: MODAFINIL
     Indication: Sleep disorder
     Dates: start: 2013
  25. ORPHENADRINE/ACETYLSALICYLIC ACID [Concomitant]
     Indication: Muscle relaxant therapy
     Dates: start: 2013
  26. ACETAMINOPHEN\OXYCODONE HYDROCHLORIDE [Concomitant]
     Active Substance: ACETAMINOPHEN\OXYCODONE HYDROCHLORIDE
     Indication: Pain
     Dates: start: 2010, end: 2013
  27. METFORMIN [Concomitant]
     Active Substance: METFORMIN HYDROCHLORIDE
     Indication: Diabetes mellitus
     Dates: start: 2009
  28. ASPIRIN [Concomitant]
     Active Substance: ASPIRIN
     Indication: Analgesic therapy
     Dates: start: 2015
  29. ASPIRIN [Concomitant]
     Active Substance: ASPIRIN
     Indication: Cardiac disorder
     Dates: start: 2015
  30. LIPITOR [Concomitant]
     Active Substance: ATORVASTATIN CALCIUM
     Indication: Blood cholesterol increased
     Dates: start: 2005, end: 2011
  31. VITAMIN D3 [Concomitant]
     Active Substance: CHOLECALCIFEROL
     Indication: Vitamin supplementation
     Dates: start: 2014
  32. PHENAZOPYRIDINE [Concomitant]
     Active Substance: PHENAZOPYRIDINE
  33. TAMSULOSIN [Concomitant]
     Active Substance: TAMSULOSIN
  34. MELOXICAM [Concomitant]
     Active Substance: MELOXICAM
  35. PROAIR HFA [Concomitant]
     Active Substance: ALBUTEROL SULFATE
  36. MODAFINIL [Concomitant]
     Active Substance: MODAFINIL
  37. CARVEDILOL [Concomitant]
     Active Substance: CARVEDILOL
  38. LEVOFLOXACIN [Concomitant]
     Active Substance: LEVOFLOXACIN
  39. AFLURIA NOS [Concomitant]
     Active Substance: INFLUENZA VIRUS VACCINE TRIVALENT TYPE A+B AFLURIA
  40. CYCLOBENZAPRINE [Concomitant]
     Active Substance: CYCLOBENZAPRINE
  41. CELEBREX [Concomitant]
     Active Substance: CELECOXIB
  42. METRONIDAZOLE [Concomitant]
     Active Substance: METRONIDAZOLE
  43. ZITHROMAX [Concomitant]
     Active Substance: AZITHROMYCIN DIHYDRATE
  44. FLONASE [Concomitant]
     Active Substance: FLUTICASONE PROPIONATE
  45. NASONEX [Concomitant]
     Active Substance: MOMETASONE FUROATE
  46. LEVEMIR [Concomitant]
     Active Substance: INSULIN DETEMIR
  47. TRAMADOL HCL [Concomitant]
     Active Substance: TRAMADOL HYDROCHLORIDE
  48. FLUVIRIN NOS [Concomitant]
     Active Substance: INFLUENZA VIRUS VACCINE
  49. FENOFIBRIC ACID [Concomitant]
     Active Substance: FENOFIBRIC ACID
  50. PRAVASTATIN [Concomitant]
     Active Substance: PRAVASTATIN

REACTIONS (6)
  - Chronic kidney disease [Not Recovered/Not Resolved]
  - End stage renal disease [Unknown]
  - Renal failure [Unknown]
  - Nephrogenic anaemia [Unknown]
  - Hyperparathyroidism secondary [Unknown]
  - Rebound acid hypersecretion [Unknown]

NARRATIVE: CASE EVENT DATE: 20140616
